FAERS Safety Report 24786439 (Version 2)
Quarter: 2025Q1

REPORT INFORMATION
  Report Type: Spontaneous
  Country: US (occurrence: US)
  Receive Date: 20241230
  Receipt Date: 20250105
  Transmission Date: 20250409
  Serious: No
  Sender: SANOFI AVENTIS
  Company Number: US-SA-2024SA382945

PATIENT
  Age: 43 Year
  Sex: Female

DRUGS (4)
  1. CABLIVI [Suspect]
     Active Substance: CAPLACIZUMAB-YHDP
     Indication: Thrombotic microangiopathy
     Dosage: 11 MG, QD
     Route: 058
  2. CABLIVI [Suspect]
     Active Substance: CAPLACIZUMAB-YHDP
     Indication: Thrombotic microangiopathy
     Dosage: 11 MG, QD
     Route: 058
  3. CABLIVI [Suspect]
     Active Substance: CAPLACIZUMAB-YHDP
     Indication: Thrombotic microangiopathy
     Dosage: 11 MG, QD
     Route: 058
  4. CABLIVI [Suspect]
     Active Substance: CAPLACIZUMAB-YHDP
     Indication: Thrombotic microangiopathy
     Dosage: 11 MG, QD
     Route: 058

REACTIONS (8)
  - Rash [Unknown]
  - Insomnia [Unknown]
  - Anxiety [Unknown]
  - Platelet count increased [Unknown]
  - Haemorrhage [Unknown]
  - Fatigue [Recovering/Resolving]
  - Contusion [Unknown]
  - Product use in unapproved indication [Unknown]
